FAERS Safety Report 10357286 (Version 1)
Quarter: 2014Q3

REPORT INFORMATION
  Report Type: Spontaneous
  Country: CH (occurrence: CH)
  Receive Date: 20140801
  Receipt Date: 20140801
  Transmission Date: 20150326
  Serious: Yes (Hospitalization)
  Sender: FDA-Public Use
  Company Number: CH-PFIZER INC-2014211834

PATIENT
  Age: 73 Year
  Sex: Female
  Weight: 86.7 kg

DRUGS (8)
  1. ALDACTONE [Suspect]
     Active Substance: SPIRONOLACTONE
     Dosage: 25 MG, 1X/DAY
     Route: 048
     Dates: end: 20140616
  2. MARCOUMAR [Suspect]
     Active Substance: PHENPROCOUMON
     Indication: CARDIAC VALVE PROSTHESIS USER
     Dosage: 1.5 MG, 1X/DAY
     Route: 048
     Dates: start: 2001, end: 20140616
  3. LASIX [Concomitant]
     Active Substance: FUROSEMIDE
     Dosage: 40 MG, 1X/DAY
     Route: 048
     Dates: end: 20140616
  4. ENATEC [Suspect]
     Active Substance: ENALAPRIL MALEATE
     Dosage: 20 MG, 1X/DAY
     Route: 048
     Dates: end: 20140616
  5. TENORMIN [Concomitant]
     Active Substance: ATENOLOL
     Dosage: 25 MG, 1X/DAY
     Route: 048
  6. MEPHANOL [Concomitant]
     Active Substance: ALLOPURINOL
     Dosage: 100 MG, 1X/DAY
     Route: 048
  7. DAFLON 500 [Concomitant]
     Dosage: 500 MG, 1X/DAY
     Route: 048
  8. TENORMIN [Concomitant]
     Active Substance: ATENOLOL
     Dosage: 25 MG, 2X/DAY
     Route: 048

REACTIONS (6)
  - Shock haemorrhagic [Recovering/Resolving]
  - Hyperkalaemia [Recovered/Resolved]
  - Renal failure chronic [Recovered/Resolved]
  - Gastrointestinal haemorrhage [Recovering/Resolving]
  - Anaemia [Recovering/Resolving]
  - Metabolic acidosis [Recovering/Resolving]

NARRATIVE: CASE EVENT DATE: 20140616
